FAERS Safety Report 25191181 (Version 2)
Quarter: 2025Q2

REPORT INFORMATION
  Report Type: Spontaneous
  Country: US (occurrence: US)
  Receive Date: 20250411
  Receipt Date: 20250506
  Transmission Date: 20250716
  Serious: No
  Sender: CALLIDITAS THERAPEUTICS AB
  Company Number: US-Calliditas-2025CAL00936

PATIENT
  Age: 47 Year
  Sex: Male

DRUGS (20)
  1. TARPEYO [Suspect]
     Active Substance: BUDESONIDE
     Indication: IgA nephropathy
     Route: 048
     Dates: start: 20250119
  2. AMLODIPINE [Concomitant]
     Active Substance: AMLODIPINE BESYLATE
  3. ASPIRIN [Concomitant]
     Active Substance: ASPIRIN
  4. BACLOFEN [Concomitant]
     Active Substance: BACLOFEN
  5. ENTECAVIR [Concomitant]
     Active Substance: ENTECAVIR
  6. ERGOCALCIFEROL [Concomitant]
     Active Substance: ERGOCALCIFEROL
  7. FERROUS SULFATE [Concomitant]
     Active Substance: FERROUS SULFATE
  8. FOLIC ACID [Concomitant]
     Active Substance: FOLIC ACID
  9. GABAPENTIN [Concomitant]
     Active Substance: GABAPENTIN
  10. TRADJENTA [Concomitant]
     Active Substance: LINAGLIPTIN
  11. MAGNESIUM OXIDE [Concomitant]
     Active Substance: MAGNESIUM OXIDE
  12. METOPROLOL SUCCINATE [Concomitant]
     Active Substance: METOPROLOL SUCCINATE
  13. VITAMINS [Concomitant]
     Active Substance: VITAMINS
  14. SIMVASTATIN [Concomitant]
     Active Substance: SIMVASTATIN
  15. SIROLIMUS [Concomitant]
     Active Substance: SIROLIMUS
  16. SODIUM BICARBONATE [Concomitant]
     Active Substance: SODIUM BICARBONATE
  17. TACROLIMUS [Concomitant]
     Active Substance: TACROLIMUS
  18. HYDRALAZINE [Concomitant]
     Active Substance: HYDRALAZINE HYDROCHLORIDE
  19. VELTASSA [Concomitant]
     Active Substance: PATIROMER
  20. LOKELMA [SODIUM ZIRCONIUM CYCLOSILICATE] [Concomitant]

REACTIONS (1)
  - Peripheral swelling [Unknown]
